FAERS Safety Report 13641474 (Version 1)
Quarter: 2017Q2

REPORT INFORMATION
  Report Type: Spontaneous
  Country: US (occurrence: US)
  Receive Date: 20170610
  Receipt Date: 20170610
  Transmission Date: 20170830
  Serious: Yes (Hospitalization)
  Sender: FDA-Public Use
  Company Number: None

PATIENT
  Age: 14 Year
  Sex: Male
  Weight: 81 kg

DRUGS (1)
  1. ZENATANE [Suspect]
     Active Substance: ISOTRETINOIN
     Indication: ACNE CYSTIC
     Dosage: ?          QUANTITY:2 CAPSULE(S);?
     Route: 048

REACTIONS (1)
  - Gastritis [None]

NARRATIVE: CASE EVENT DATE: 20170218
